FAERS Safety Report 19728843 (Version 1)
Quarter: 2021Q3

REPORT INFORMATION
  Report Type: Spontaneous
  Country: DE (occurrence: DE)
  Receive Date: 20210820
  Receipt Date: 20210820
  Transmission Date: 20211014
  Serious: Yes (Other)
  Sender: FDA-Public Use
  Company Number: DE-SUN PHARMACEUTICAL INDUSTRIES LTD-2021R1-308651

PATIENT
  Age: 35 Year
  Sex: Female

DRUGS (3)
  1. ENOXAPARIN SODIUM. [Suspect]
     Active Substance: ENOXAPARIN SODIUM
     Indication: ANTICOAGULANT THERAPY
     Dosage: UNK
     Route: 065
  2. FUROSEMIDE. [Suspect]
     Active Substance: FUROSEMIDE
     Indication: NEPHROTIC SYNDROME
     Dosage: UNK
     Route: 065
  3. HYDROCHLOROTHIAZIDE. [Suspect]
     Active Substance: HYDROCHLOROTHIAZIDE
     Indication: NEPHROTIC SYNDROME
     Dosage: UNK
     Route: 065

REACTIONS (5)
  - Placenta praevia [Unknown]
  - Drug ineffective [Unknown]
  - Foetal death [Unknown]
  - Exposure during pregnancy [Unknown]
  - Premature rupture of membranes [Unknown]
